FAERS Safety Report 8907187 (Version 1)
Quarter: 2012Q4

REPORT INFORMATION
  Report Type: 
  Country: US (occurrence: US)
  Receive Date: 20121114
  Receipt Date: 20121114
  Transmission Date: 20130627
  Serious: Yes (Other)
  Sender: FDA-Public Use
  Company Number: US-009507513-1211USA002836

PATIENT
  Sex: Male

DRUGS (1)
  1. SINGULAIR [Suspect]
     Route: 048

REACTIONS (20)
  - Suicide attempt [Unknown]
  - Abnormal behaviour [Unknown]
  - Mood altered [Unknown]
  - Agitation [Unknown]
  - Aggression [Unknown]
  - Irritability [Unknown]
  - Hostility [Unknown]
  - Restlessness [Unknown]
  - Abnormal dreams [Unknown]
  - Somnambulism [Unknown]
  - Depression [Unknown]
  - Suicidal ideation [Unknown]
  - Disorientation [Unknown]
  - Anxiety [Unknown]
  - Tremor [Unknown]
  - Hallucination [Unknown]
  - Poor quality sleep [Unknown]
  - Eosinophil count increased [Unknown]
  - Diffuse vasculitis [Unknown]
  - Nasopharyngitis [Unknown]
